FAERS Safety Report 6834477-9 (Version None)
Quarter: 2010Q3

REPORT INFORMATION
  Report Type: 
  Country: None (occurrence: None)
  Receive Date: 20100712
  Receipt Date: 20070411
  Transmission Date: 20110219
  Serious: No
  Sender: FDA-Public Use
  Company Number: US-PFIZER INC-2007030876

PATIENT
  Sex: Female
  Weight: 54.43 kg

DRUGS (7)
  1. CHANTIX [Suspect]
     Indication: SMOKING CESSATION THERAPY
     Dates: start: 20070401
  2. LISINOPRIL [Concomitant]
  3. TRICOR [Concomitant]
  4. DILTIAZEM [Concomitant]
  5. LABETALOL HCL [Concomitant]
  6. LIPITOR [Concomitant]
  7. SPIRIVA [Concomitant]

REACTIONS (2)
  - MALAISE [None]
  - VOMITING [None]
